FAERS Safety Report 6534477-2 (Version None)
Quarter: 2010Q1

REPORT INFORMATION
  Report Type: 
  Country: None (occurrence: None)
  Receive Date: 20100112
  Receipt Date: 20100106
  Transmission Date: 20100710
  Serious: Yes (Death, Disabling)
  Sender: FDA-Public Use
  Company Number: JP-BRISTOL-MYERS SQUIBB COMPANY-14901656

PATIENT
  Age: 76 Year
  Sex: Female
  Weight: 58 kg

DRUGS (14)
  1. TAXOL [Suspect]
     Indication: OVARIAN CANCER
     Dosage: 284-191 MG: 08SEP08-20AUG09 85MG:25SEP09-16NOV09;24NOV09
     Route: 041
     Dates: start: 20080908, end: 20091124
  2. CARBOPLATIN [Concomitant]
     Indication: OVARIAN CANCER
     Dosage: INJ 1 D.F=415-282MG/BODY
     Route: 041
     Dates: start: 20080908, end: 20090820
  3. SOLDEM 3A [Concomitant]
     Indication: PREMEDICATION
     Dosage: INJ
     Route: 041
     Dates: start: 20091123, end: 20091124
  4. DEXAMETHASONE SODIUM PHOSPHATE [Concomitant]
     Indication: PREMEDICATION
     Dosage: INJ
     Route: 041
     Dates: start: 20091123, end: 20091124
  5. RANITIDINE HCL [Concomitant]
     Indication: PREMEDICATION
     Dosage: INJ
     Route: 042
     Dates: start: 20091124, end: 20091124
  6. CHLORPHENIRAMINE MALEATE [Concomitant]
     Indication: PREMEDICATION
     Dosage: INJ
     Route: 042
     Dates: start: 20091124, end: 20091124
  7. RAMOSETRON HCL [Concomitant]
     Indication: PREMEDICATION
     Dosage: INJ
     Route: 041
     Dates: start: 20091124, end: 20091124
  8. OLMESARTAN MEDOXOMIL [Concomitant]
     Indication: HYPERTENSION
     Dosage: TAB
     Route: 048
     Dates: start: 20080901
  9. SODIUM PICOSULFATE [Concomitant]
     Dosage: SODIUM PICOSULFATE HYDRATE TAB
     Route: 048
     Dates: start: 20080901
  10. LOXOPROFEN SODIUM [Concomitant]
     Dosage: LOXOPROFEN SODIUM HYDRATE TAB
     Route: 048
     Dates: start: 20080901
  11. AMLODIPINE BESYLATE [Concomitant]
     Indication: HYPERTENSION
     Dosage: TAB
     Route: 048
     Dates: start: 20080901
  12. MECOBALAMIN [Concomitant]
     Indication: NEUROPATHY PERIPHERAL
     Dosage: TAB
     Route: 048
     Dates: start: 20080901
  13. BROTIZOLAM [Concomitant]
     Indication: INSOMNIA
     Dosage: TAB
     Route: 048
     Dates: start: 20080901
  14. METOCLOPRAMIDE HCL [Concomitant]
     Dosage: TAB
     Route: 048
     Dates: start: 20080901

REACTIONS (2)
  - CEREBRAL INFARCTION [None]
  - PNEUMONIA [None]
